FAERS Safety Report 23539914 (Version 2)
Quarter: 2024Q4

REPORT INFORMATION
  Report Type: Spontaneous
  Country: JP (occurrence: JP)
  Receive Date: 20240219
  Receipt Date: 20241114
  Transmission Date: 20250115
  Serious: Yes (Death, Other)
  Sender: ALEXION PHARMACEUTICALS
  Company Number: 2024A040091

PATIENT

DRUGS (14)
  1. IMFINZI [Suspect]
     Active Substance: DURVALUMAB
     Indication: Small cell lung cancer
     Dosage: DOSE UNKNOWN
  2. IMFINZI [Suspect]
     Active Substance: DURVALUMAB
     Dosage: DOSE UNKNOWN
  3. IMFINZI [Suspect]
     Active Substance: DURVALUMAB
     Dosage: DOSE UNKNOWN
  4. IMFINZI [Suspect]
     Active Substance: DURVALUMAB
     Dosage: DOSE UNKNOWN
  5. IMFINZI [Suspect]
     Active Substance: DURVALUMAB
     Dosage: 500 MILLIGRAM, Q3W
  6. IMFINZI [Suspect]
     Active Substance: DURVALUMAB
     Dosage: 500 MILLIGRAM, Q3W
  7. IMFINZI [Suspect]
     Active Substance: DURVALUMAB
     Dosage: 500 MILLIGRAM, Q3W
  8. IMFINZI [Suspect]
     Active Substance: DURVALUMAB
     Dosage: 500 MILLIGRAM, Q3W
  9. ETOPOSIDE [Concomitant]
     Active Substance: ETOPOSIDE
     Indication: Small cell lung cancer
     Dosage: DOSE UNKNOWN, ON THE FIRST, SECOND AND THIRD DAYS OF EACH CYCLE
     Route: 065
  10. ETOPOSIDE [Concomitant]
     Active Substance: ETOPOSIDE
     Dosage: DOSE UNKNOWN, ON THE FIRST, SECOND AND THIRD DAYS OF EACH CYCLE
  11. ETOPOSIDE [Concomitant]
     Active Substance: ETOPOSIDE
     Dosage: DOSE UNKNOWN, ON THE FIRST, SECOND AND THIRD DAYS OF EACH CYCLE
     Route: 065
  12. ETOPOSIDE [Concomitant]
     Active Substance: ETOPOSIDE
     Dosage: DOSE UNKNOWN, ON THE FIRST, SECOND AND THIRD DAYS OF EACH CYCLE
  13. UNSPECIFIED INGREDIENT [Concomitant]
     Active Substance: UNSPECIFIED INGREDIENT
     Indication: Small cell lung cancer
     Dosage: DOSE UNKNOWN
  14. UNSPECIFIED INGREDIENT [Concomitant]
     Active Substance: UNSPECIFIED INGREDIENT
     Dosage: DOSE UNKNOWN
     Route: 065

REACTIONS (1)
  - Death [Fatal]
